FAERS Safety Report 11184778 (Version 2)
Quarter: 2015Q3

REPORT INFORMATION
  Report Type: Spontaneous
  Country: US (occurrence: US)
  Receive Date: 20150612
  Receipt Date: 20150709
  Transmission Date: 20151125
  Serious: Yes (Other)
  Sender: FDA-Public Use
  Company Number: US-PFIZER INC-2015194193

PATIENT
  Age: 56 Year
  Sex: Female
  Weight: 123.36 kg

DRUGS (2)
  1. LYRICA [Suspect]
     Active Substance: PREGABALIN
     Dosage: 75 MG, 1X/DAY AT BED TIME
  2. LYRICA [Suspect]
     Active Substance: PREGABALIN
     Indication: NEUROPATHY PERIPHERAL
     Dosage: 75 MG, 2X/DAY (MORNING AND THE BED TIME)

REACTIONS (7)
  - Arthropathy [Unknown]
  - Insomnia [Unknown]
  - Pain in extremity [Unknown]
  - Burning sensation [Unknown]
  - Fear [Unknown]
  - Paraesthesia [Unknown]
  - Hypoaesthesia [Unknown]
